FAERS Safety Report 5390485-9 (Version None)
Quarter: 2007Q3

REPORT INFORMATION
  Report Type: 
  Country: None (occurrence: None)
  Receive Date: 20070718
  Receipt Date: 20070131
  Transmission Date: 20080115
  Serious: No
  Sender: FDA-Public Use
  Company Number: US-KINGPHARMUSA00001-K200700123

PATIENT

DRUGS (1)
  1. LEVOXYL [Suspect]
     Indication: THYROID DISORDER

REACTIONS (9)
  - ADRENAL INSUFFICIENCY [None]
  - ALOPECIA [None]
  - CARDIAC DISORDER [None]
  - CONDITION AGGRAVATED [None]
  - DRUG INEFFECTIVE [None]
  - DRY SKIN [None]
  - FATIGUE [None]
  - VISION BLURRED [None]
  - WEIGHT INCREASED [None]
